FAERS Safety Report 4686153-9 (Version None)
Quarter: 2005Q2

REPORT INFORMATION
  Report Type: 
  Country: None (occurrence: None)
  Receive Date: 20050609
  Receipt Date: 20050310
  Transmission Date: 20051028
  Serious: Yes (Death, Hospitalization)
  Sender: FDA-Public Use
  Company Number: US-MERCK-0503USA02020

PATIENT
  Age: 70 Year
  Sex: Female
  Weight: 68 kg

DRUGS (8)
  1. VIOXX [Suspect]
     Indication: ARTHRITIS
     Route: 048
     Dates: start: 20010327, end: 20031001
  2. PREMARIN [Concomitant]
     Route: 065
  3. DAYPRO [Concomitant]
     Route: 065
  4. ADVIL [Concomitant]
     Route: 065
     Dates: start: 20000101, end: 20030101
  5. TYLENOL (CAPLET) [Concomitant]
     Route: 065
     Dates: start: 20000101, end: 20030101
  6. ZESTRIL [Concomitant]
     Route: 065
     Dates: start: 19980101, end: 20020101
  7. TOPROL-XL [Concomitant]
     Route: 065
     Dates: start: 19980101, end: 20020101
  8. [THERAPY UNSPECIFIED] [Concomitant]
     Route: 065

REACTIONS (11)
  - CEREBROVASCULAR ACCIDENT [None]
  - CEREBROVASCULAR DISORDER [None]
  - CORONARY ARTERY DISEASE [None]
  - EMOTIONAL DISTRESS [None]
  - HEPATOMEGALY [None]
  - HYPERTENSION [None]
  - INFLAMMATION [None]
  - LYMPHADENOPATHY MEDIASTINAL [None]
  - MYOCARDIAL INFARCTION [None]
  - PULMONARY EMBOLISM [None]
  - TRANSIENT ISCHAEMIC ATTACK [None]
